FAERS Safety Report 5034402-X (Version None)
Quarter: 2006Q2

REPORT INFORMATION
  Report Type: 
  Country: None (occurrence: None)
  Receive Date: 20060626
  Receipt Date: 20060620
  Transmission Date: 20061013
  Serious: Yes (Death, Hospitalization, Other)
  Sender: FDA-Public Use
  Company Number: PHBS2006US09243

PATIENT
  Age: 74 Year
  Sex: Female

DRUGS (6)
  1. AZATHIOPRINE [Concomitant]
  2. PREDNISONE [Concomitant]
  3. CYCLOSPORINE [Suspect]
     Indication: HEART TRANSPLANT
  4. METRONIDAZOLE [Suspect]
     Indication: CLOSTRIDIUM COLITIS
     Route: 048
  5. ATORVASTATIN CALCIUM [Concomitant]
     Dosage: 20 MG/D
  6. SIMVASTATIN [Suspect]
     Indication: HYPERCHOLESTEROLAEMIA
     Dosage: 40 MG/D

REACTIONS (10)
  - ASPARTATE AMINOTRANSFERASE INCREASED [None]
  - BLOOD CREATINE PHOSPHOKINASE INCREASED [None]
  - CLOSTRIDIUM COLITIS [None]
  - DIALYSIS [None]
  - DRUG LEVEL INCREASED [None]
  - MUSCULAR WEAKNESS [None]
  - PLEURAL EFFUSION [None]
  - RENAL FAILURE [None]
  - RENAL IMPAIRMENT [None]
  - RHABDOMYOLYSIS [None]
